FAERS Safety Report 11792027 (Version 2)
Quarter: 2015Q4

REPORT INFORMATION
  Report Type: Spontaneous
  Country: GB (occurrence: GB)
  Receive Date: 20151201
  Receipt Date: 20151210
  Transmission Date: 20160305
  Serious: Yes (Hospitalization)
  Sender: FDA-Public Use
  Company Number: PHHY2015GB153022

PATIENT

DRUGS (24)
  1. LINEZOLID. [Suspect]
     Active Substance: LINEZOLID
     Indication: POSTOPERATIVE CARE
     Dosage: 600 MG, BID
     Route: 048
     Dates: start: 20151102, end: 20151106
  2. LEVOFLOXACIN. [Concomitant]
     Active Substance: LEVOFLOXACIN
     Indication: PRODUCT USED FOR UNKNOWN INDICATION
     Route: 065
  3. ONDANSETRON [Concomitant]
     Active Substance: ONDANSETRON
     Indication: PRODUCT USED FOR UNKNOWN INDICATION
     Route: 065
  4. ONDANSETRON [Concomitant]
     Active Substance: ONDANSETRON
     Dosage: UNK
  5. LINEZOLID. [Suspect]
     Active Substance: LINEZOLID
     Dosage: 600 MG, 2X/DAY
     Route: 048
     Dates: start: 20151102, end: 20151106
  6. MEROPENEM. [Suspect]
     Active Substance: MEROPENEM
     Indication: POSTOPERATIVE CARE
     Dosage: 1 G, TID
     Route: 042
     Dates: start: 20151027, end: 20151110
  7. LEVOFLOXACIN. [Concomitant]
     Active Substance: LEVOFLOXACIN
     Dosage: UNK
  8. TINZAPARIN [Concomitant]
     Active Substance: TINZAPARIN
     Indication: PRODUCT USED FOR UNKNOWN INDICATION
     Route: 065
  9. CIPROFLOXACIN. [Suspect]
     Active Substance: CIPROFLOXACIN
     Indication: POSTOPERATIVE CARE
     Dosage: 500 MG, BID
     Route: 048
     Dates: start: 20151102, end: 20151106
  10. METRONIDAZOLE. [Suspect]
     Active Substance: METRONIDAZOLE
     Indication: POSTOPERATIVE CARE
     Dosage: 400 MG, TID
     Route: 048
     Dates: start: 20151102, end: 20151106
  11. PARACETAMOL [Concomitant]
     Active Substance: ACETAMINOPHEN
     Indication: PRODUCT USED FOR UNKNOWN INDICATION
     Route: 065
  12. TRAMADOL. [Concomitant]
     Active Substance: TRAMADOL
     Indication: PRODUCT USED FOR UNKNOWN INDICATION
     Route: 065
  13. IBUPROFEN. [Concomitant]
     Active Substance: IBUPROFEN
     Dosage: UNK
  14. PARACETAMOL [Concomitant]
     Active Substance: ACETAMINOPHEN
     Dosage: UNK
  15. PROCHLORPERAZINE. [Concomitant]
     Active Substance: PROCHLORPERAZINE
     Indication: PRODUCT USED FOR UNKNOWN INDICATION
     Route: 065
  16. TINZAPARIN [Concomitant]
     Active Substance: TINZAPARIN
     Dosage: UNK
  17. TRAMADOL. [Concomitant]
     Active Substance: TRAMADOL
     Dosage: UNK
  18. CIPROFLOXACIN. [Suspect]
     Active Substance: CIPROFLOXACIN
     Dosage: 500 MG, 2X/DAY
     Route: 048
     Dates: start: 20151102, end: 20151106
  19. MEROPENEM. [Suspect]
     Active Substance: MEROPENEM
     Dosage: 1 G, 3X/DAY
     Route: 042
     Dates: start: 20151027, end: 20151110
  20. METRONIDAZOLE. [Suspect]
     Active Substance: METRONIDAZOLE
     Dosage: 400 MG, 3X/DAY
     Route: 048
     Dates: start: 20151102, end: 20151106
  21. CYCLIZINE [Concomitant]
     Active Substance: CYCLIZINE
     Indication: PRODUCT USED FOR UNKNOWN INDICATION
     Route: 065
  22. IBUPROFEN. [Concomitant]
     Active Substance: IBUPROFEN
     Indication: PRODUCT USED FOR UNKNOWN INDICATION
     Route: 065
  23. PROCHLORPERAZINE. [Concomitant]
     Active Substance: PROCHLORPERAZINE
     Dosage: UNK
  24. CYCLIZINE [Concomitant]
     Active Substance: CYCLIZINE
     Dosage: UNK

REACTIONS (2)
  - Cholecystitis acute [Recovering/Resolving]
  - Liver function test abnormal [Recovered/Resolved]

NARRATIVE: CASE EVENT DATE: 2015
